FAERS Safety Report 14964655 (Version 3)
Quarter: 2020Q3

REPORT INFORMATION
  Report Type: Report from Study
  Country: GR (occurrence: GR)
  Receive Date: 20180601
  Receipt Date: 20190207
  Transmission Date: 20201105
  Serious: Yes (Death, Hospitalization, Disabling, Other)
  Sender: FDA-Public Use
  Company Number: GR-ASTRAZENECA-2016SE69350

PATIENT
  Age: 51 Year
  Sex: Male

DRUGS (10)
  1. SOLIFENACIN [Concomitant]
     Active Substance: SOLIFENACIN
     Indication: BENIGN PROSTATIC HYPERPLASIA
     Route: 048
     Dates: start: 20160201
  2. MEDI4736 [Suspect]
     Active Substance: DURVALUMAB
     Indication: SQUAMOUS CELL CARCINOMA OF HEAD AND NECK
     Route: 042
     Dates: start: 20160428, end: 20160428
  3. TREMELIMUMAB. [Suspect]
     Active Substance: TREMELIMUMAB
     Indication: SQUAMOUS CELL CARCINOMA OF HEAD AND NECK
     Route: 042
     Dates: start: 20160428, end: 20160428
  4. LONARID?N [Concomitant]
     Active Substance: ACETAMINOPHEN\CAFFEINE\CODEINE PHOSPHATE
     Indication: ORAL PAIN
     Dosage: 500.0MG AS REQUIRED
     Route: 048
     Dates: start: 20160201
  5. MEDI4736 [Suspect]
     Active Substance: DURVALUMAB
     Indication: SQUAMOUS CELL CARCINOMA OF HEAD AND NECK
     Route: 042
     Dates: start: 20160526, end: 20160526
  6. ABSTRAL [Concomitant]
     Active Substance: FENTANYL CITRATE
     Indication: ORAL PAIN
     Dosage: 100.0MG AS REQUIRED
     Route: 060
     Dates: start: 20160401
  7. TREMELIMUMAB. [Suspect]
     Active Substance: TREMELIMUMAB
     Indication: SQUAMOUS CELL CARCINOMA OF HEAD AND NECK
     Route: 042
     Dates: start: 20160526, end: 20160526
  8. PARIET [Concomitant]
     Active Substance: RABEPRAZOLE SODIUM
     Indication: GASTROOESOPHAGEAL REFLUX DISEASE
     Route: 048
     Dates: start: 20160201
  9. CYMBALTA [Concomitant]
     Active Substance: DULOXETINE HYDROCHLORIDE
     Indication: NEURALGIA
     Route: 048
     Dates: start: 20160201
  10. LYRICA [Concomitant]
     Active Substance: PREGABALIN
     Indication: ORAL PAIN
     Route: 048
     Dates: start: 20160201

REACTIONS (1)
  - Face oedema [Not Recovered/Not Resolved]

NARRATIVE: CASE EVENT DATE: 20160617
